FAERS Safety Report 12824172 (Version 6)
Quarter: 2016Q4

REPORT INFORMATION
  Report Type: Report from Study
  Country: US (occurrence: US)
  Receive Date: 20161006
  Receipt Date: 20161130
  Transmission Date: 20170207
  Serious: Yes (Other)
  Sender: FDA-Public Use
  Company Number: US-BAYER-2016-143664

PATIENT
  Age: 85 Year
  Sex: Female
  Weight: 76 kg

DRUGS (6)
  1. ADEMPAS [Suspect]
     Active Substance: RIOCIGUAT
     Indication: PULMONARY ARTERIAL HYPERTENSION
     Dosage: UNK
     Dates: start: 20141106
  2. PREDNISONE. [Concomitant]
     Active Substance: PREDNISONE
     Dosage: UNK
  3. ADEMPAS [Suspect]
     Active Substance: RIOCIGUAT
     Indication: PULMONARY ARTERIAL HYPERTENSION
     Dosage: 2.5 MG, TID
     Route: 048
  4. ADEMPAS [Suspect]
     Active Substance: RIOCIGUAT
     Indication: PULMONARY ARTERIAL HYPERTENSION
     Dosage: 2.5 MG, TID
     Route: 048
  5. OPSUMIT [Concomitant]
     Active Substance: MACITENTAN
     Dosage: UNK
  6. UPTRAVI [Concomitant]
     Active Substance: SELEXIPAG
     Dosage: 200 ?G, BID
     Dates: start: 20160801

REACTIONS (39)
  - Middle ear effusion [Not Recovered/Not Resolved]
  - Urine output increased [Unknown]
  - Ear discomfort [Not Recovered/Not Resolved]
  - Muscle spasms [None]
  - Pain in extremity [None]
  - Diarrhoea [Unknown]
  - Renal disorder [None]
  - Diarrhoea [Recovered/Resolved]
  - Ear congestion [Unknown]
  - Insomnia [None]
  - Balance disorder [None]
  - Pollakiuria [None]
  - Mobility decreased [Unknown]
  - Otorrhoea [None]
  - Malaise [None]
  - Decreased appetite [None]
  - Dizziness postural [None]
  - Dyspnoea exertional [None]
  - Dyspnoea [None]
  - Asthenia [None]
  - Headache [None]
  - Peripheral swelling [None]
  - Feeling abnormal [None]
  - Vision blurred [Unknown]
  - Dyspnoea [None]
  - Blood glucose decreased [None]
  - Constipation [Recovered/Resolved]
  - Fatigue [None]
  - Tinnitus [Not Recovered/Not Resolved]
  - Bronchitis [Unknown]
  - Ear discomfort [Unknown]
  - Dizziness [None]
  - Oedema peripheral [Unknown]
  - Muscle spasms [None]
  - Hypoacusis [Unknown]
  - Feeling abnormal [Unknown]
  - Chills [None]
  - Somnolence [None]
  - Diarrhoea [None]

NARRATIVE: CASE EVENT DATE: 2016
